FAERS Safety Report 14784116 (Version 7)
Quarter: 2019Q2

REPORT INFORMATION
  Report Type: Spontaneous
  Country: US (occurrence: US)
  Receive Date: 20180420
  Receipt Date: 20190425
  Transmission Date: 20190711
  Serious: Yes (Other)
  Sender: FDA-Public Use
  Company Number: US-ASTRAZENECA-2018SE49392

PATIENT
  Age: 709 Month
  Sex: Female
  Weight: 64 kg

DRUGS (39)
  1. PRILOSEC [Suspect]
     Active Substance: OMEPRAZOLE MAGNESIUM
     Indication: GASTROOESOPHAGEAL REFLUX DISEASE
     Dosage: GENERIC
     Route: 065
     Dates: start: 201008, end: 201207
  2. PRILOSEC OTC [Suspect]
     Active Substance: OMEPRAZOLE MAGNESIUM
     Indication: GASTROOESOPHAGEAL REFLUX DISEASE
     Route: 048
     Dates: start: 2005, end: 201207
  3. PREVACID [Suspect]
     Active Substance: LANSOPRAZOLE
     Route: 048
     Dates: start: 200909, end: 201211
  4. AMITRIPTYLINE [Concomitant]
     Active Substance: AMITRIPTYLINE
     Dosage: 10 MG
  5. IRBESARTAN. [Concomitant]
     Active Substance: IRBESARTAN
  6. SODIUM BICARBONATE. [Concomitant]
     Active Substance: SODIUM BICARBONATE
  7. TETRACYCLINE [Concomitant]
     Active Substance: TETRACYCLINE
  8. RANITIDINE. [Concomitant]
     Active Substance: RANITIDINE
  9. NEXIUM [Suspect]
     Active Substance: ESOMEPRAZOLE MAGNESIUM
     Route: 048
     Dates: start: 200909, end: 201211
  10. PREVACID 24 HR [Suspect]
     Active Substance: LANSOPRAZOLE
     Route: 048
     Dates: start: 200909, end: 201211
  11. NEURONTIN [Concomitant]
     Active Substance: GABAPENTIN
  12. LEVAQUIN [Concomitant]
     Active Substance: LEVOFLOXACIN
  13. PRILOSEC [Suspect]
     Active Substance: OMEPRAZOLE MAGNESIUM
     Indication: GASTROOESOPHAGEAL REFLUX DISEASE
     Route: 048
     Dates: start: 200909, end: 201211
  14. PRILOSEC [Suspect]
     Active Substance: OMEPRAZOLE MAGNESIUM
     Indication: GASTROOESOPHAGEAL REFLUX DISEASE
     Route: 048
     Dates: start: 200909, end: 201211
  15. DEXILANT [Suspect]
     Active Substance: DEXLANSOPRAZOLE
     Route: 048
     Dates: start: 200909, end: 201211
  16. NEXIUM 24HR [Suspect]
     Active Substance: ESOMEPRAZOLE MAGNESIUM
     Route: 048
     Dates: start: 200909, end: 201211
  17. PRILOSEC [Suspect]
     Active Substance: OMEPRAZOLE MAGNESIUM
     Indication: GASTROOESOPHAGEAL REFLUX DISEASE
     Route: 048
     Dates: start: 201008, end: 201207
  18. PRILOSEC OTC [Suspect]
     Active Substance: OMEPRAZOLE MAGNESIUM
     Indication: GASTROOESOPHAGEAL REFLUX DISEASE
     Route: 048
     Dates: start: 200909, end: 201211
  19. AMOXYCILLIN [Concomitant]
     Active Substance: AMOXICILLIN
  20. CLINDAMYCIN. [Concomitant]
     Active Substance: CLINDAMYCIN
  21. FUROSEMIDE. [Concomitant]
     Active Substance: FUROSEMIDE
  22. POTASSIUM CHLORIDE. [Concomitant]
     Active Substance: POTASSIUM CHLORIDE
  23. PRILOSEC [Suspect]
     Active Substance: OMEPRAZOLE MAGNESIUM
     Indication: GASTROOESOPHAGEAL REFLUX DISEASE
     Route: 048
     Dates: start: 20100101, end: 20121231
  24. PRILOSEC [Suspect]
     Active Substance: OMEPRAZOLE MAGNESIUM
     Indication: GASTROOESOPHAGEAL REFLUX DISEASE
     Dosage: GENERIC
     Route: 065
     Dates: start: 201008, end: 201207
  25. ALPRAZOLAM. [Concomitant]
     Active Substance: ALPRAZOLAM
     Dosage: 0.25 MG
  26. CEPHALEXIN. [Concomitant]
     Active Substance: CEPHALEXIN
  27. VIMOVO [Suspect]
     Active Substance: ESOMEPRAZOLE MAGNESIUM\NAPROXEN
     Route: 048
     Dates: start: 200909, end: 201211
  28. DOXYCYCLINE. [Concomitant]
     Active Substance: DOXYCYCLINE
  29. GABAPENTIN. [Concomitant]
     Active Substance: GABAPENTIN
  30. PRILOSEC [Suspect]
     Active Substance: OMEPRAZOLE MAGNESIUM
     Indication: GASTROOESOPHAGEAL REFLUX DISEASE
     Route: 048
     Dates: start: 201008, end: 201207
  31. HYDROCODONE-ACETAMINOPHEN [Concomitant]
     Active Substance: ACETAMINOPHEN\HYDROCODONE
     Dosage: 7.5-750 MG
  32. ERGOCALCIFEROL. [Concomitant]
     Active Substance: ERGOCALCIFEROL
  33. PRILOSEC [Suspect]
     Active Substance: OMEPRAZOLE MAGNESIUM
     Indication: GASTROOESOPHAGEAL REFLUX DISEASE
     Route: 048
     Dates: start: 20100101, end: 20121231
  34. PRILOSEC OTC [Suspect]
     Active Substance: OMEPRAZOLE MAGNESIUM
     Indication: GASTROOESOPHAGEAL REFLUX DISEASE
     Route: 048
     Dates: start: 20100101, end: 20121231
  35. PROTONIX [Suspect]
     Active Substance: PANTOPRAZOLE SODIUM
     Route: 048
     Dates: start: 200909, end: 201211
  36. ACIPHEX [Suspect]
     Active Substance: RABEPRAZOLE SODIUM
     Route: 048
     Dates: start: 200909, end: 201211
  37. HYDROCODONE [Concomitant]
     Active Substance: HYDROCODONE
  38. BISACODYL. [Concomitant]
     Active Substance: BISACODYL
     Dosage: 5 MG
  39. AVALIDE [Concomitant]
     Active Substance: HYDROCHLOROTHIAZIDE\IRBESARTAN

REACTIONS (6)
  - Chronic kidney disease [Not Recovered/Not Resolved]
  - Renal failure [Not Recovered/Not Resolved]
  - Tubulointerstitial nephritis [Not Recovered/Not Resolved]
  - Acute kidney injury [Unknown]
  - Nephrogenic anaemia [Unknown]
  - Renal injury [Unknown]

NARRATIVE: CASE EVENT DATE: 201206
